FAERS Safety Report 13276647 (Version 1)
Quarter: 2017Q1

REPORT INFORMATION
  Report Type: Spontaneous
  Country: GB (occurrence: None)
  Receive Date: 20170227
  Receipt Date: 20170227
  Transmission Date: 20170428
  Serious: Yes (Hospitalization, Disabling)
  Sender: FDA-Public Use
  Company Number: GB2017K0927SPO

PATIENT
  Age: 89 Year

DRUGS (15)
  1. SALBUTAMOL [Concomitant]
     Active Substance: ALBUTEROL
  2. TIOTROPIUM (TIOTROPIUM) [Concomitant]
     Active Substance: TIOTROPIUM
  3. SIMVASTATIN. [Concomitant]
     Active Substance: SIMVASTATIN
  4. IVABRADINE WORLD (IVABRADINE) [Suspect]
     Active Substance: IVABRADINE
     Dosage: DAILY DOSE - 5 MG, 2X PER DAY
  5. CANDESARTAN GENERIC (CANDESARTAN) UNKNOWN [Suspect]
     Active Substance: CANDESARTAN
     Dosage: DAILY DOSE - 6MG, 1X PER DAY
  6. FUROSEMIDE. [Suspect]
     Active Substance: FUROSEMIDE
     Dosage: DAILY DOSE - 20 MG, 1X PER DAY
  7. MIRABEGRON [Concomitant]
     Active Substance: MIRABEGRON
  8. QUININE (QUININE) [Suspect]
     Active Substance: QUININE
     Dosage: DAILY DOSE - 300 MG, 1X PER DAY (AT NIGHT)
  9. ISPAGHULA EXTRACT\PSYLLIUM [Concomitant]
     Active Substance: PLANTAGO OVATA SEED\PLANTAGO SEED
  10. OXYBUTYNIN [Concomitant]
     Active Substance: OXYBUTYNIN
  11. PARACETAMOL [Concomitant]
     Active Substance: ACETAMINOPHEN
  12. RIVAROXABAN [Concomitant]
     Active Substance: RIVAROXABAN
  13. SERETIDE (FLUTICASONE PROPIONATE MICRONISED, SALMETEROL, XINAFOATE MICRONISED) [Concomitant]
  14. LANSOPRAZOLE GENERIC (LANSOPRAZOLE) UNKNOWN [Suspect]
     Active Substance: LANSOPRAZOLE
     Dosage: DAILY DOSE - 30 MG, 1X PER DAY
  15. NITRAZEPAM [Concomitant]
     Active Substance: NITRAZEPAM

REACTIONS (4)
  - Hypokalaemia [None]
  - Fall [None]
  - Blood sodium decreased [None]
  - Electrocardiogram QT prolonged [None]
